FAERS Safety Report 4384197-8 (Version None)
Quarter: 2004Q2

REPORT INFORMATION
  Report Type: 
  Country: None (occurrence: None)
  Receive Date: 20040623
  Receipt Date: 20040623
  Transmission Date: 20050107
  Serious: Yes (Hospitalization)
  Sender: FDA-Public Use
  Company Number: None

PATIENT
  Sex: Female
  Weight: 49.8957 kg

DRUGS (4)
  1. LOVASTATIN [Suspect]
     Indication: HYPERLIPIDAEMIA
     Dosage: 40 MG DAILY ORAL
     Route: 048
     Dates: start: 20040415, end: 20040617
  2. ATIVAN [Concomitant]
  3. MIRTAZAPINE [Concomitant]
  4. PAROXETINE HCL [Concomitant]

REACTIONS (2)
  - DIFFICULTY IN WALKING [None]
  - MYALGIA [None]
